FAERS Safety Report 4725062-3 (Version None)
Quarter: 2005Q3

REPORT INFORMATION
  Report Type: 
  Country: None (occurrence: None)
  Receive Date: 20050721
  Receipt Date: 20050711
  Transmission Date: 20060218
  Serious: Yes (Other)
  Sender: FDA-Public Use
  Company Number: 2005081014

PATIENT
  Age: 60 Year
  Sex: Female
  Weight: 77.1115 kg

DRUGS (4)
  1. NEURONTIN [Suspect]
     Indication: ILL-DEFINED DISORDER
     Dosage: (200 MG)
  2. ZANTAC 75 [Suspect]
     Indication: GASTROINTESTINAL DISORDER
     Dosage: 75 MG (75 MG, 1 IN 1 D)
     Dates: start: 20050501
  3. TYLENOL (PARACETAMOL) [Concomitant]
  4. COLACE (DOCUSATE SODIUM) [Concomitant]

REACTIONS (3)
  - ABDOMINAL DISCOMFORT [None]
  - DRUG INTERACTION [None]
  - SPINAL OPERATION [None]
